FAERS Safety Report 5646976-6 (Version None)
Quarter: 2008Q1

REPORT INFORMATION
  Report Type: 
  Country: None (occurrence: None)
  Receive Date: 20080303
  Receipt Date: 20080226
  Transmission Date: 20080703
  Serious: Yes (Hospitalization)
  Sender: FDA-Public Use
  Company Number: B0500605A

PATIENT
  Age: 56 Year
  Sex: Male
  Weight: 77 kg

DRUGS (10)
  1. ARIXTRA [Suspect]
     Indication: THROMBOSIS PROPHYLAXIS
     Dosage: 2.5MG PER DAY
     Route: 058
     Dates: start: 20071117, end: 20071119
  2. DIOVAN [Concomitant]
     Indication: HYPERTENSION
     Dosage: 80MG TWICE PER DAY
     Route: 048
  3. URINORM [Concomitant]
     Indication: GOUT
     Dosage: 25MG TWICE PER DAY
     Route: 048
  4. VOLTAREN [Concomitant]
     Indication: ANALGESIA
     Dosage: 25MG TWICE PER DAY
     Route: 048
  5. GASTER D [Concomitant]
     Dosage: 10MG TWICE PER DAY
     Route: 048
  6. CELESTAMINE TAB [Concomitant]
     Route: 048
  7. RIMATIL [Concomitant]
     Indication: RHEUMATOID ARTHRITIS
     Dosage: 100MG PER DAY
     Route: 048
  8. CRESTOR [Concomitant]
     Dosage: 2.5MG PER DAY
     Route: 048
  9. AMARYL [Concomitant]
     Indication: DIABETES MELLITUS
     Dosage: .5MG PER DAY
     Route: 048
  10. URALYT [Concomitant]
     Indication: GOUT
     Route: 048

REACTIONS (7)
  - CARDIOVASCULAR DISORDER [None]
  - HAEMORRHAGE SUBCUTANEOUS [None]
  - POST PROCEDURAL HAEMORRHAGE [None]
  - SWELLING [None]
  - WOUND DEHISCENCE [None]
  - WOUND HAEMORRHAGE [None]
  - WOUND SECRETION [None]
